FAERS Safety Report 6132659-5 (Version None)
Quarter: 2009Q1

REPORT INFORMATION
  Report Type: 
  Country: None (occurrence: None)
  Receive Date: 20090324
  Receipt Date: 20090311
  Transmission Date: 20090719
  Serious: Yes (Hospitalization)
  Sender: FDA-Public Use
  Company Number: 2008AL011299

PATIENT
  Age: 81 Year
  Sex: Male

DRUGS (15)
  1. DIGOXIN [Suspect]
     Dosage: 0.25MG, DAILY, PO
     Route: 048
  2. SYNTHROID [Concomitant]
  3. LIPITOR [Concomitant]
  4. COUMADIN [Concomitant]
  5. LASIX [Concomitant]
  6. ASPIRIN [Concomitant]
  7. METOPROLOL [Concomitant]
  8. ALBUTEROL [Concomitant]
  9. SPIRIVA [Concomitant]
  10. ZOLOFT [Concomitant]
  11. BACLOFEN [Concomitant]
  12. MULTI-VITAMIN [Concomitant]
  13. SENOKOT [Concomitant]
  14. CUTRUCEL [Concomitant]
  15. PROBIOTIC [Concomitant]

REACTIONS (5)
  - ATRIAL FIBRILLATION [None]
  - FEELING ABNORMAL [None]
  - OVERDOSE [None]
  - TRANSIENT ISCHAEMIC ATTACK [None]
  - VISUAL IMPAIRMENT [None]
